FAERS Safety Report 4994942-6 (Version None)
Quarter: 2006Q2

REPORT INFORMATION
  Report Type: 
  Country: None (occurrence: None)
  Receive Date: 20060508
  Receipt Date: 20060428
  Transmission Date: 20061013
  Serious: Yes (Hospitalization)
  Sender: FDA-Public Use
  Company Number: 2006SE02477

PATIENT
  Age: 74 Year
  Sex: Male
  Weight: 73 kg

DRUGS (3)
  1. COKENZEN [Suspect]
     Indication: HYPERTENSION
     Route: 048
     Dates: start: 20051115, end: 20060303
  2. SAVARINE [Concomitant]
     Indication: MALARIA PROPHYLAXIS
     Route: 048
  3. VERAPAMIL [Concomitant]
     Indication: HYPERTENSION
     Route: 048

REACTIONS (3)
  - CONDITION AGGRAVATED [None]
  - PHOTOSENSITIVITY REACTION [None]
  - PSORIASIS [None]
